FAERS Safety Report 5617244-3 (Version None)
Quarter: 2008Q1

REPORT INFORMATION
  Report Type: 
  Country: None (occurrence: None)
  Receive Date: 20080206
  Receipt Date: 20080206
  Transmission Date: 20080703
  Serious: Yes (Hospitalization)
  Sender: FDA-Public Use
  Company Number: None

PATIENT
  Sex: Male
  Weight: 65.4 kg

DRUGS (1)
  1. CYTARABINE [Suspect]
     Dosage: 28160 MG

REACTIONS (5)
  - CHEST PAIN [None]
  - FUNGAL INFECTION [None]
  - LUNG CONSOLIDATION [None]
  - LUNG NEOPLASM [None]
  - PNEUMOTHORAX [None]
